FAERS Safety Report 9771182 (Version 1)
Quarter: 2013Q4

REPORT INFORMATION
  Report Type: Spontaneous
  Country: US (occurrence: US)
  Receive Date: 20131218
  Receipt Date: 20131218
  Transmission Date: 20140711
  Serious: Yes (Other)
  Sender: FDA-Public Use
  Company Number: US-ELI_LILLY_AND_COMPANY-US201312004154

PATIENT
  Sex: Male

DRUGS (2)
  1. HUMULIN NPH [Suspect]
     Indication: DIABETES MELLITUS
     Route: 065
  2. HUMALOG LISPRO [Suspect]
     Indication: DIABETES MELLITUS
     Route: 065

REACTIONS (4)
  - Myocardial infarction [Unknown]
  - Cardiac failure [Unknown]
  - Renal disorder [Unknown]
  - Cardiac disorder [Unknown]
